FAERS Safety Report 23483403 (Version 1)
Quarter: 2024Q1

REPORT INFORMATION
  Report Type: Spontaneous
  Country: US (occurrence: US)
  Receive Date: 20240205
  Receipt Date: 20240205
  Transmission Date: 20240409
  Serious: No
  Sender: FDA-Public Use
  Company Number: US-PFIZER INC-PV202300064829

PATIENT
  Age: 80 Year
  Sex: Female

DRUGS (3)
  1. IBRANCE [Suspect]
     Active Substance: PALBOCICLIB
     Indication: Breast cancer female
     Dosage: DAILY AT 07:00 TAKE 1 TABLET FOR 21 DAYS THEN OFF FOR 14 DAYS
     Route: 048
  2. IBRANCE [Suspect]
     Active Substance: PALBOCICLIB
     Dosage: TAKE ONE TABLET BY MOUTH DAILY FOR 21 DAYS, THEN 7 DAYS OFF REPEAT CYCLE EVERY 28 DAYS.
     Route: 048
  3. XANAX [Concomitant]
     Active Substance: ALPRAZOLAM
     Indication: Insomnia
     Dosage: TAKE 0.5 MG BY MOUTH NIGHTLY AS NEEDED FOR SLEEPLESSNESS
     Route: 048

REACTIONS (2)
  - Off label use [Unknown]
  - Anxiety [Unknown]
